FAERS Safety Report 5210662-7 (Version None)
Quarter: 2007Q1

REPORT INFORMATION
  Report Type: 
  Country: None (occurrence: None)
  Receive Date: 20070116
  Receipt Date: 20070116
  Transmission Date: 20070707
  Serious: Yes (Other)
  Sender: FDA-Public Use
  Company Number: None

PATIENT

DRUGS (1)
  1. ARM AND HAMMER ADVANCED WHITE BRILLIANT SPARKLE, TARTAR CONTROL AND BA [Suspect]

REACTIONS (2)
  - ORAL DISCOMFORT [None]
  - ORAL MUCOSAL BLISTERING [None]
